FAERS Safety Report 7687304-4 (Version None)
Quarter: 2011Q3

REPORT INFORMATION
  Report Type: 
  Country: None (occurrence: None)
  Receive Date: 20110816
  Receipt Date: 20100920
  Transmission Date: 20111222
  Serious: No
  Sender: FDA-Public Use
  Company Number: US-BRISTOL-MYERS SQUIBB COMPANY-15256001

PATIENT
  Sex: Male

DRUGS (1)
  1. ZERIT [Suspect]
     Dosage: 1DF=1 DOSE

REACTIONS (1)
  - EXPIRED DRUG ADMINISTERED [None]
